FAERS Safety Report 5804157-7 (Version None)
Quarter: 2008Q3

REPORT INFORMATION
  Report Type: 
  Country: None (occurrence: None)
  Receive Date: 20080707
  Receipt Date: 20080623
  Transmission Date: 20090109
  Serious: Yes (Hospitalization)
  Sender: FDA-Public Use
  Company Number: 8033912

PATIENT
  Age: 4 Year
  Sex: Female

DRUGS (10)
  1. KEPPRA [Suspect]
     Indication: EPILEPSY
     Dosage: 125 MG /D PO
     Route: 048
     Dates: start: 20080213, end: 20080319
  2. KEPPRA [Suspect]
     Indication: LENNOX-GASTAUT SYNDROME
     Dosage: 125 MG /D PO
     Route: 048
     Dates: start: 20080213, end: 20080319
  3. KEPPRA [Suspect]
     Indication: EPILEPSY
     Dosage: 125 MG 2/D PO
     Route: 048
     Dates: start: 20080320, end: 20080326
  4. KEPPRA [Suspect]
     Indication: LENNOX-GASTAUT SYNDROME
     Dosage: 125 MG 2/D PO
     Route: 048
     Dates: start: 20080320, end: 20080326
  5. KEPPRA [Suspect]
     Indication: EPILEPSY
     Dosage: 375 MG PO
     Route: 048
     Dates: start: 20080327, end: 20080402
  6. KEPPRA [Suspect]
     Indication: LENNOX-GASTAUT SYNDROME
     Dosage: 375 MG PO
     Route: 048
     Dates: start: 20080327, end: 20080402
  7. KEPPRA [Suspect]
     Indication: EPILEPSY
     Dosage: 250 MG 2/D PO
     Route: 048
     Dates: start: 20080403, end: 20080523
  8. KEPPRA [Suspect]
     Indication: EPILEPSY
     Dosage: 375 MG 2/D PO
     Route: 048
     Dates: start: 20080524, end: 20080612
  9. TOPAMAX [Concomitant]
  10. OXCARBAZEPINE [Concomitant]

REACTIONS (2)
  - RASH [None]
  - VARICELLA [None]
